FAERS Safety Report 5954519-2 (Version None)
Quarter: 2008Q4

REPORT INFORMATION
  Report Type: 
  Country: None (occurrence: None)
  Receive Date: 20081112
  Receipt Date: 20081104
  Transmission Date: 20090506
  Serious: Yes (Death, Life-Threatening, Hospitalization)
  Sender: FDA-Public Use
  Company Number: 2008JP004396

PATIENT
  Age: 48 Year
  Sex: Female

DRUGS (11)
  1. PROGRAF [Suspect]
     Indication: BONE MARROW TRANSPLANT
     Dosage: 1.2 MG, IV DRIP : 1.2 MG, CONTINOUS, IV DRIP
     Route: 041
     Dates: start: 20070906, end: 20070929
  2. PROGRAF [Suspect]
     Indication: BONE MARROW TRANSPLANT
     Dosage: 1.2 MG, IV DRIP : 1.2 MG, CONTINOUS, IV DRIP
     Route: 041
     Dates: start: 20070930, end: 20071002
  3. CYCLOPHOSPHAMIDE [Suspect]
     Indication: BONE MARROW CONDITIONING REGIMEN
  4. METHOTREXATE [Concomitant]
  5. SOLU-MEDROL [Concomitant]
  6. FUNGUARD (MICAFUNGIN) INJECTION [Concomitant]
  7. MEROPEN (MEROPENEM) INJECTION [Concomitant]
  8. FINIBAX (DORIPENEM) INJECTION [Concomitant]
  9. TARGOCID [Concomitant]
  10. DENOSINE (GANCICLOVIR) INJECTION [Concomitant]
  11. FOSCAVIR [Concomitant]

REACTIONS (10)
  - BONE MARROW TRANSPLANT [None]
  - CEREBRAL TOXOPLASMOSIS [None]
  - CYTOMEGALOVIRUS ENTEROCOLITIS [None]
  - ENCEPHALOPATHY [None]
  - NEUTROPHIL COUNT INCREASED [None]
  - RENAL IMPAIRMENT [None]
  - SEPSIS [None]
  - THROMBOTIC MICROANGIOPATHY [None]
  - VENOOCCLUSIVE LIVER DISEASE [None]
  - WEIGHT INCREASED [None]
